FAERS Safety Report 4763160-9 (Version None)
Quarter: 2005Q3

REPORT INFORMATION
  Report Type: 
  Country: None (occurrence: None)
  Receive Date: 20050901
  Receipt Date: 20050814
  Transmission Date: 20060218
  Serious: No
  Sender: FDA-Public Use
  Company Number: THYM-10698

PATIENT

DRUGS (1)
  1. THYMOGLOBULIN [Suspect]

REACTIONS (3)
  - LUNG DISORDER [None]
  - OEDEMA [None]
  - POST PROCEDURAL COMPLICATION [None]
